FAERS Safety Report 4277223-8 (Version None)
Quarter: 2004Q1

REPORT INFORMATION
  Report Type: 
  Country: None (occurrence: None)
  Receive Date: 20040120
  Receipt Date: 20040107
  Transmission Date: 20041129
  Serious: Yes (Hospitalization, Other)
  Sender: FDA-Public Use
  Company Number: 2003010397

PATIENT
  Age: 77 Year
  Sex: Female

DRUGS (2)
  1. SERTRALINE HCL [Suspect]
     Indication: DEPRESSION
     Dosage: 50 MG (DAILY); ORAL (SEE IMAGE)
     Route: 048
     Dates: start: 20021101, end: 20030301
  2. TICLOPIDINE HCL [Concomitant]

REACTIONS (4)
  - ABASIA [None]
  - APHASIA [None]
  - CEREBRAL ISCHAEMIA [None]
  - HEMIPLEGIA [None]
